FAERS Safety Report 17502051 (Version 1)
Quarter: 2020Q1

REPORT INFORMATION
  Report Type: Spontaneous
  Country: US (occurrence: US)
  Receive Date: 20200305
  Receipt Date: 20200305
  Transmission Date: 20200409
  Serious: No
  Sender: FDA-Public Use
  Company Number: US-ALKERMES INC.-ALK-2020-000927

PATIENT
  Age: 4 Decade
  Sex: Female

DRUGS (2)
  1. OTHER THERAPEUTIC PRODUCTS [Concomitant]
     Active Substance: UNSPECIFIED INGREDIENT
     Indication: BIPOLAR DISORDER
     Dosage: UNK, QMO
  2. ARISTADA [Suspect]
     Active Substance: ARIPIPRAZOLE LAUROXIL
     Indication: BIPOLAR DISORDER
     Dosage: 1064 MG, Q8WK
     Route: 030

REACTIONS (1)
  - Off label use [Not Recovered/Not Resolved]
